FAERS Safety Report 11403872 (Version 2)
Quarter: 2016Q3

REPORT INFORMATION
  Report Type: Spontaneous
  Country: GB (occurrence: GB)
  Receive Date: 20150821
  Receipt Date: 20160805
  Transmission Date: 20161109
  Serious: Yes (Other)
  Sender: FDA-Public Use
  Company Number: GB-SUN PHARMACEUTICAL INDUSTRIES LTD-2015RR-101795

PATIENT

DRUGS (3)
  1. CIPROFLOXACIN. [Suspect]
     Active Substance: CIPROFLOXACIN
     Indication: PYELONEPHRITIS
     Dosage: 500 MG, UNK
     Route: 048
     Dates: start: 20150728
  2. NITROFURANTOIN. [Concomitant]
     Active Substance: NITROFURANTOIN
     Indication: URINARY TRACT INFECTION
     Dosage: PRIOR TO CIPROFLOXACIN
     Route: 065
  3. TRIMETHOPRIM. [Concomitant]
     Active Substance: TRIMETHOPRIM
     Indication: URINARY TRACT INFECTION
     Dosage: PRIOR TO CIPROFLOXACIN
     Route: 065

REACTIONS (6)
  - Burning sensation [Unknown]
  - Paraesthesia [Unknown]
  - Muscular weakness [Unknown]
  - Acute polyneuropathy [Unknown]
  - Pain [Unknown]
  - Sensory disturbance [Unknown]
